FAERS Safety Report 15857041 (Version 1)
Quarter: 2019Q1

REPORT INFORMATION
  Report Type: Report from Study
  Country: EG (occurrence: EG)
  Receive Date: 20190123
  Receipt Date: 20190123
  Transmission Date: 20190417
  Serious: Yes (Other)
  Sender: FDA-Public Use
  Company Number: PHHY2019EG010424

PATIENT
  Age: 37 Year
  Sex: Female

DRUGS (1)
  1. GLIVEC [Suspect]
     Active Substance: IMATINIB MESYLATE
     Indication: CHRONIC MYELOID LEUKAEMIA
     Dosage: 400 MG, QD
     Route: 048

REACTIONS (9)
  - Rash [Recovered/Resolved]
  - Dizziness [Recovering/Resolving]
  - Arthralgia [Recovering/Resolving]
  - Pain [Recovering/Resolving]
  - Hypernatraemia [Recovering/Resolving]
  - Hypokinesia [Recovering/Resolving]
  - Dyspnoea [Recovering/Resolving]
  - Peripheral swelling [Recovering/Resolving]
  - Skin wrinkling [Recovering/Resolving]
